FAERS Safety Report 9239142 (Version 2)
Quarter: 2013Q2

REPORT INFORMATION
  Report Type: Report from Study
  Country: US (occurrence: US)
  Receive Date: 20130418
  Receipt Date: 20130507
  Transmission Date: 20140414
  Serious: No
  Sender: FDA-Public Use
  Company Number: US-VERTEX PHARMACEUTICALS INC.-2013-004888

PATIENT
  Age: 57 Year
  Sex: Male
  Weight: 82 kg

DRUGS (7)
  1. VX-950 (TELAPREVIR) [Suspect]
     Indication: HEPATITIS C
     Dosage: 750 MG, TID
     Route: 048
  2. PEGASYS [Suspect]
     Indication: HEPATITIS C
     Dosage: 180 MCG/M
     Route: 058
  3. RIBAVIRIN [Suspect]
     Indication: HEPATITIS C
     Dosage: 200 MG
     Route: 048
  4. ASA [Concomitant]
     Dosage: 81 MG  EC
     Route: 048
  5. METOPROLOL [Concomitant]
     Dosage: 25 MG
     Route: 048
  6. PERCOCET [Concomitant]
     Dosage: 5-325 MG
     Route: 048
  7. LORAZEPAM [Concomitant]
     Dosage: .5 MG, UNK
     Route: 048

REACTIONS (3)
  - Dysuria [Unknown]
  - Constipation [Unknown]
  - Nausea [Unknown]
